FAERS Safety Report 16758222 (Version 3)
Quarter: 2019Q4

REPORT INFORMATION
  Report Type: Report from Study
  Country: None (occurrence: CO)
  Receive Date: 20190830
  Receipt Date: 20191121
  Transmission Date: 20200122
  Serious: Yes (Death, Hospitalization, Other)
  Sender: FDA-Public Use
  Company Number: CO-ABBVIE-19K-036-2906984-00

PATIENT
  Age: 78 Year
  Sex: Female
  Weight: 54 kg

DRUGS (3)
  1. ACETAMINOPHEN. [Concomitant]
     Active Substance: ACETAMINOPHEN
     Indication: PAIN
     Route: 048
     Dates: start: 2015
  2. HUMIRA [Suspect]
     Active Substance: ADALIMUMAB
     Indication: ANKYLOSING SPONDYLITIS
     Route: 058
     Dates: start: 20180522, end: 20190713
  3. DIMARD [Concomitant]
     Indication: PAIN
     Route: 048
     Dates: start: 2017

REACTIONS (14)
  - Abdominal pain [Not Recovered/Not Resolved]
  - Respiratory distress [Unknown]
  - Myocardial infarction [Fatal]
  - Cholecystectomy [Unknown]
  - Gastroenteritis [Unknown]
  - Dyspnoea [Fatal]
  - Pulmonary oedema [Unknown]
  - Drug ineffective [Not Recovered/Not Resolved]
  - Hypertension [Fatal]
  - Surgery [Not Recovered/Not Resolved]
  - Blister [Unknown]
  - Back pain [Not Recovered/Not Resolved]
  - Chest pain [Unknown]
  - Arthralgia [Not Recovered/Not Resolved]

NARRATIVE: CASE EVENT DATE: 201906
